FAERS Safety Report 4948454-6 (Version None)
Quarter: 2006Q1

REPORT INFORMATION
  Report Type: 
  Country: None (occurrence: None)
  Receive Date: 20060314
  Receipt Date: 20060308
  Transmission Date: 20060701
  Serious: Yes (Death)
  Sender: FDA-Public Use
  Company Number: 2005-136156-NL

PATIENT
  Age: 75 Year
  Sex: Male

DRUGS (5)
  1. DANAPAROID SODIUM [Suspect]
     Indication: DISSEMINATED INTRAVASCULAR COAGULATION
     Dosage: 1250 ANTI-XA BID; INTRAVENOUS (NOS)
     Route: 042
     Dates: start: 20050825, end: 20051006
  2. GABEXATE MESILATE [Concomitant]
  3. RIPAMPICIN [Concomitant]
  4. ISONIAZID [Concomitant]
  5. PYRIDOXAL PHOSPHATE [Concomitant]

REACTIONS (9)
  - ANAEMIA [None]
  - BLOOD BILIRUBIN INCREASED [None]
  - BLOOD CREATINE INCREASED [None]
  - BLOOD POTASSIUM INCREASED [None]
  - BLOOD PRESSURE DECREASED [None]
  - GASTROINTESTINAL HAEMORRHAGE [None]
  - HAEMOGLOBIN DECREASED [None]
  - HAEMOPTYSIS [None]
  - WHITE BLOOD CELL COUNT DECREASED [None]
